FAERS Safety Report 4791550-7 (Version None)
Quarter: 2005Q4

REPORT INFORMATION
  Report Type: 
  Country: None (occurrence: None)
  Receive Date: 20051007
  Receipt Date: 20050124
  Transmission Date: 20060501
  Serious: No
  Sender: FDA-Public Use
  Company Number: US-BRISTOL-MYERS SQUIBB COMPANY-12875506

PATIENT
  Age: 86 Year
  Sex: Male
  Weight: 84 kg

DRUGS (4)
  1. AVAPRO [Suspect]
     Indication: HYPERTENSION
     Dates: start: 20050101
  2. ZOCOR [Concomitant]
  3. GLIPIZIDE [Concomitant]
  4. PROBENECID [Concomitant]

REACTIONS (1)
  - DIZZINESS [None]
